FAERS Safety Report 9011273 (Version 1)
Quarter: 2013Q1

REPORT INFORMATION
  Report Type: Spontaneous
  Country: US (occurrence: US)
  Receive Date: 20130109
  Receipt Date: 20130109
  Transmission Date: 20140127
  Serious: No
  Sender: FDA-Public Use
  Company Number: US-009507513-1301USA002902

PATIENT
  Age: 27 Year
  Sex: Female
  Weight: 83.9 kg

DRUGS (2)
  1. IMPLANON [Suspect]
     Indication: CONTRACEPTION
     Dosage: 1 ROD, FOR 3 YEARS , RIGHT ARM
     Dates: start: 20121206
  2. IMITREX (SUMATRIPTAN SUCCINATE) [Concomitant]

REACTIONS (2)
  - Headache [Unknown]
  - Application site discomfort [Unknown]
